FAERS Safety Report 9661068 (Version 2)
Quarter: 2014Q1

REPORT INFORMATION
  Report Type: Spontaneous
  Country: US (occurrence: US)
  Receive Date: 20131031
  Receipt Date: 20140115
  Transmission Date: 20141002
  Serious: No
  Sender: FDA-Public Use
  Company Number: US-TEVA-441591USA

PATIENT
  Age: 31 Year
  Sex: Female
  Weight: 106.69 kg

DRUGS (2)
  1. PARAGARD 380A [Suspect]
     Indication: CONTRACEPTION
     Route: 015
     Dates: start: 20100301, end: 20131029
  2. LEVOXINE [Concomitant]
     Indication: HYPOTHYROIDISM

REACTIONS (3)
  - Medical device complication [Unknown]
  - Metrorrhagia [Unknown]
  - Device breakage [Unknown]
